FAERS Safety Report 22168705 (Version 1)
Quarter: 2023Q2

REPORT INFORMATION
  Report Type: Spontaneous
  Country: US (occurrence: US)
  Receive Date: 20230403
  Receipt Date: 20230403
  Transmission Date: 20230721
  Serious: No
  Sender: FDA-Public Use
  Company Number: US-BAYER-2023A038931

PATIENT
  Age: 71 Year
  Sex: Male

DRUGS (5)
  1. MIRALAX [Suspect]
     Active Substance: POLYETHYLENE GLYCOL 3350
     Dosage: 1 PACKET
     Route: 048
  2. MINOXIDIL [Concomitant]
     Active Substance: MINOXIDIL
     Dosage: UNK
  3. PROPECIA [Concomitant]
     Active Substance: FINASTERIDE
     Dosage: UNK
  4. ASPIRIN [Concomitant]
     Active Substance: ASPIRIN
     Dosage: UNK
  5. LEXAPRO [Concomitant]
     Active Substance: ESCITALOPRAM OXALATE
     Dosage: UNK

REACTIONS (9)
  - Off label use [Recovering/Resolving]
  - Hypersensitivity [Recovering/Resolving]
  - Eye pruritus [Recovering/Resolving]
  - Pruritus [Recovering/Resolving]
  - Blister [Recovering/Resolving]
  - Rash [Recovering/Resolving]
  - Pyrexia [Not Recovered/Not Resolved]
  - Tachycardia [Not Recovered/Not Resolved]
  - Chills [Not Recovered/Not Resolved]

NARRATIVE: CASE EVENT DATE: 20230301
